FAERS Safety Report 9295796 (Version 3)
Quarter: 2013Q3

REPORT INFORMATION
  Report Type: Spontaneous
  Country: US (occurrence: US)
  Receive Date: 20130517
  Receipt Date: 20130805
  Transmission Date: 20140515
  Serious: Yes (Death, Hospitalization)
  Sender: FDA-Public Use
  Company Number: US-INCYTE CORPORATION-2013IN000911

PATIENT
  Age: 74 Year
  Sex: Male

DRUGS (13)
  1. JAKAFI [Suspect]
     Indication: MYELOFIBROSIS
     Dosage: 10 MG, BID
     Route: 048
     Dates: start: 201210
  2. JAKAFI [Suspect]
     Dosage: 5 MG, BID
     Route: 048
  3. JAKAFI [Suspect]
     Dosage: 5 MG, QD
     Route: 048
     Dates: end: 201304
  4. DILTIAZEM [Concomitant]
  5. VITAMIN B6 [Concomitant]
  6. VITAMIN B12 [Concomitant]
  7. ALLOPURINOL [Concomitant]
  8. WARFARIN [Concomitant]
  9. EFFEXOR [Concomitant]
  10. LEVOTHYROXINE [Concomitant]
  11. FLOMAX [Concomitant]
  12. HYDROXYUREA [Concomitant]
  13. FAMOTIDINE [Concomitant]

REACTIONS (2)
  - Acute myeloid leukaemia [Fatal]
  - Anaemia [Not Recovered/Not Resolved]
